FAERS Safety Report 13761921 (Version 1)
Quarter: 2017Q3

REPORT INFORMATION
  Report Type: Spontaneous
  Country: IN (occurrence: IN)
  Receive Date: 20170718
  Receipt Date: 20170718
  Transmission Date: 20171127
  Serious: No
  Sender: FDA-Public Use
  Company Number: IN-LUPIN PHARMACEUTICALS INC.-E2B_00006467

PATIENT
  Age: 18 Year
  Sex: Male

DRUGS (1)
  1. ODOXIL [Suspect]
     Active Substance: CEFADROXIL
     Indication: HYPERSENSITIVITY
     Dosage: 1 DF,TID,
     Route: 048
     Dates: start: 20161022

REACTIONS (2)
  - Product use in unapproved indication [Unknown]
  - Pruritus [Recovering/Resolving]

NARRATIVE: CASE EVENT DATE: 20161022
